FAERS Safety Report 16376249 (Version 4)
Quarter: 2020Q1

REPORT INFORMATION
  Report Type: Spontaneous
  Country: CA (occurrence: CA)
  Receive Date: 20190531
  Receipt Date: 20200207
  Transmission Date: 20200409
  Serious: Yes (Hospitalization, Disabling)
  Sender: FDA-Public Use
  Company Number: CA-TEVA-2019-CA-1055018

PATIENT
  Age: 78 Year
  Sex: Female

DRUGS (1)
  1. ZOLEDRONIC ACID INJECTION [Suspect]
     Active Substance: ZOLEDRONIC ACID
     Indication: OSTEOPOROSIS
     Dosage: FORM OF ADMIN: SOLUTION INTRAVENOUS
     Route: 042

REACTIONS (4)
  - Product use in unapproved indication [Recovered/Resolved]
  - Gait disturbance [Recovered/Resolved]
  - Peripheral swelling [Recovered/Resolved]
  - Off label use [Recovered/Resolved]
